FAERS Safety Report 19363390 (Version 2)
Quarter: 2021Q2

REPORT INFORMATION
  Report Type: Report from Study
  Country: US (occurrence: US)
  Receive Date: 20210602
  Receipt Date: 20210625
  Transmission Date: 20210717
  Serious: Yes (Death)
  Sender: FDA-Public Use
  Company Number: US-UCBSA-2021026278

PATIENT
  Sex: Male

DRUGS (1)
  1. LACOSAMIDE. [Suspect]
     Active Substance: LACOSAMIDE
     Indication: EPILEPSY
     Dosage: 200 MILLIGRAM, 2X/DAY (BID)
     Dates: start: 20170428, end: 20210128

REACTIONS (3)
  - Heart rate irregular [Fatal]
  - Renal failure [Fatal]
  - Heart rate increased [Fatal]

NARRATIVE: CASE EVENT DATE: 2020
